FAERS Safety Report 8456121 (Version 5)
Quarter: 2013Q4

REPORT INFORMATION
  Report Type: Report from Study
  Country: DE (occurrence: DE)
  Receive Date: 20120313
  Receipt Date: 20131015
  Transmission Date: 20140711
  Serious: Yes (Other)
  Sender: FDA-Public Use
  Company Number: DE-UCBSA-048526

PATIENT
  Sex: Female
  Weight: 68 kg

DRUGS (8)
  1. CIMZIA [Suspect]
     Indication: RHEUMATOID ARTHRITIS
     Route: 058
     Dates: start: 20111031, end: 2011
  2. CIMZIA [Suspect]
     Indication: RHEUMATOID ARTHRITIS
     Route: 058
     Dates: start: 20111213, end: 20111222
  3. CIMZIA [Suspect]
     Indication: RHEUMATOID ARTHRITIS
     Route: 058
     Dates: start: 20120110, end: 20120227
  4. L-THYROXINE [Concomitant]
     Indication: HORMONE REPLACEMENT THERAPY
     Route: 048
  5. L-THYROXINE [Concomitant]
     Indication: HYPOTHYROIDISM
     Route: 048
  6. ARAVA [Concomitant]
     Dates: start: 20100419, end: 20100510
  7. ARAVA [Concomitant]
     Dates: start: 20100719
  8. PREDNISOLONE [Concomitant]

REACTIONS (3)
  - Cardiac failure [Recovered/Resolved]
  - Oedema peripheral [Recovered/Resolved]
  - Hypertension [Recovered/Resolved]
